FAERS Safety Report 8788411 (Version 2)
Quarter: 2012Q4

REPORT INFORMATION
  Report Type: 
  Country: US (occurrence: US)
  Receive Date: 20120914
  Receipt Date: 20120927
  Transmission Date: 20130627
  Serious: Yes (Hospitalization)
  Sender: FDA-Public Use
  Company Number: US-VERTEX PHARMACEUTICAL INC.-AE-2012-011897

PATIENT
  Age: 55 None
  Sex: Female
  Weight: 85 kg

DRUGS (1)
  1. VX-950 [Suspect]
     Indication: HEPATITIS C
     Dosage: 750 mg, tid
     Route: 048
     Dates: start: 20120802, end: 20120912

REACTIONS (8)
  - Abnormal behaviour [Unknown]
  - Skin discolouration [Unknown]
  - Platelet count decreased [Unknown]
  - Abdominal distension [Unknown]
  - Fatigue [Unknown]
  - Oedema peripheral [Unknown]
  - Blood potassium decreased [Unknown]
  - Diarrhoea [Unknown]
